FAERS Safety Report 4511300-9 (Version None)
Quarter: 2004Q4

REPORT INFORMATION
  Report Type: 
  Country: None (occurrence: None)
  Receive Date: 20041123
  Receipt Date: 20041123
  Transmission Date: 20050328
  Serious: Yes (Life-Threatening, Hospitalization)
  Sender: FDA-Public Use
  Company Number: None

PATIENT
  Sex: Male
  Weight: 91.6266 kg

DRUGS (2)
  1. LIPITOR [Suspect]
     Indication: ADVERSE DRUG REACTION
     Dosage: PO /QD
     Route: 048
     Dates: start: 20040810, end: 20040908
  2. LIPITOR [Suspect]
     Indication: RENAL FAILURE ACUTE
     Dosage: PO /QD
     Route: 048
     Dates: start: 20040810, end: 20040908

REACTIONS (2)
  - RENAL FAILURE ACUTE [None]
  - RHABDOMYOLYSIS [None]
